FAERS Safety Report 7289000-4 (Version None)
Quarter: 2011Q1

REPORT INFORMATION
  Report Type: 
  Country: None (occurrence: None)
  Receive Date: 20110211
  Receipt Date: 20110207
  Transmission Date: 20110831
  Serious: Yes (Life-Threatening)
  Sender: FDA-Public Use
  Company Number: PHHY2011IT10162

PATIENT

DRUGS (1)
  1. PACLITAXEL [Suspect]
     Indication: ANGIOSARCOMA
     Dosage: 6 MG/ML, UNK
     Route: 042
     Dates: start: 20100714, end: 20100714

REACTIONS (5)
  - APHASIA [None]
  - NAUSEA [None]
  - ABDOMINAL PAIN UPPER [None]
  - DYSPNOEA [None]
  - ERYTHEMA [None]
